FAERS Safety Report 5749658-5 (Version None)
Quarter: 2008Q2

REPORT INFORMATION
  Report Type: 
  Country: None (occurrence: None)
  Receive Date: 20080527
  Receipt Date: 20080516
  Transmission Date: 20081010
  Serious: Yes (Hospitalization)
  Sender: FDA-Public Use
  Company Number: JP-MERCK-0805USA04584

PATIENT
  Age: 79 Year
  Sex: Male

DRUGS (1)
  1. HYZAAR [Suspect]
     Route: 048
     Dates: start: 20080201

REACTIONS (2)
  - MICROSCOPIC POLYANGIITIS [None]
  - PHOTOSENSITIVITY REACTION [None]
